FAERS Safety Report 19451139 (Version 4)
Quarter: 2021Q3

REPORT INFORMATION
  Report Type: Spontaneous
  Country: JP (occurrence: JP)
  Receive Date: 20210623
  Receipt Date: 20210812
  Transmission Date: 20211014
  Serious: Yes (Hospitalization, Other)
  Sender: FDA-Public Use
  Company Number: JP-AMGEN-JPNSP2021095361

PATIENT
  Age: 71 Year
  Sex: Female
  Weight: 40 kg

DRUGS (13)
  1. DIFENIDOL [DIFENIDOL HYDROCHLORIDE] [Concomitant]
     Dosage: 25 MILLIGRAM, BID
     Route: 048
     Dates: end: 20210526
  2. LIMAPROST ALFADEX [Concomitant]
     Active Substance: LIMAPROST
     Dosage: 5 MICROGRAM, TID
     Route: 048
     Dates: end: 20210526
  3. ROSUVASTATINE [ROSUVASTATIN CALCIUM] [Concomitant]
     Active Substance: ROSUVASTATIN CALCIUM
     Dosage: 2.5 MILLIGRAM, QD
     Route: 048
     Dates: end: 20210526
  4. AMLODIPINE [AMLODIPINE BESILATE] [Concomitant]
     Active Substance: AMLODIPINE BESYLATE
     Dosage: 2.5 MILLIGRAM, QD
     Route: 048
     Dates: end: 20210526
  5. ETHYL ICOSAPENTATE [Concomitant]
     Active Substance: ICOSAPENT ETHYL
     Dosage: 600 MILLIGRAM, TID
     Route: 048
     Dates: end: 20210526
  6. ASPARA?CA [Concomitant]
     Active Substance: CALCIUM ASPARTATE
     Dosage: 200 MILLIGRAM, TID
     Route: 048
     Dates: start: 20210531
  7. METHYCOBAL [Concomitant]
     Active Substance: METHYLCOBALAMIN
     Dosage: 500 MICROGRAM, TID
     Route: 048
     Dates: end: 20210526
  8. LINZESS [Concomitant]
     Active Substance: LINACLOTIDE
     Dosage: UNK
     Route: 048
  9. CALCIUM L?ASPARTATE [Concomitant]
     Dosage: 400 MILLIGRAM, QD
     Route: 048
     Dates: start: 20210420, end: 20210525
  10. PRALIA [Suspect]
     Active Substance: DENOSUMAB
     Indication: OSTEOPOROSIS
     Dosage: 60 MILLIGRAM, Q6MO
     Route: 058
     Dates: start: 20210420
  11. CEFALEXIN [Suspect]
     Active Substance: CEPHALEXIN
     Indication: PRODUCT USED FOR UNKNOWN INDICATION
     Dosage: UNK
     Route: 048
  12. ALFACALCIDOL [Concomitant]
     Active Substance: ALFACALCIDOL
     Dosage: 0.5 MICROGRAM, QD
     Route: 048
     Dates: start: 20210506, end: 20210525
  13. ALFACALCIDOL [Concomitant]
     Active Substance: ALFACALCIDOL
     Dosage: 0.5 MICROGRAM, QD
     Route: 048
     Dates: start: 20210602

REACTIONS (4)
  - Hypocalcaemia [Recovered/Resolved]
  - Myelosuppression [Recovering/Resolving]
  - Urinary tract infection [Unknown]
  - Hyperventilation [Recovering/Resolving]

NARRATIVE: CASE EVENT DATE: 20210508
